FAERS Safety Report 6999400-5 (Version None)
Quarter: 2010Q3

REPORT INFORMATION
  Report Type: 
  Country: None (occurrence: None)
  Receive Date: 20100920
  Receipt Date: 20100617
  Transmission Date: 20110219
  Serious: No
  Sender: FDA-Public Use
  Company Number: US-ASTRAZENECA-2010SE28481

PATIENT
  Age: 17663 Day
  Sex: Female
  Weight: 68 kg

DRUGS (6)
  1. SEROQUEL XR [Suspect]
     Indication: BIPOLAR DISORDER
     Route: 048
     Dates: start: 20100301
  2. SEROQUEL XR [Suspect]
     Route: 048
  3. SEROQUEL XR [Suspect]
     Route: 048
  4. VITAMINS [Concomitant]
  5. CARBAMAZEPINE [Concomitant]
  6. SLEEP MED [Concomitant]

REACTIONS (3)
  - ALOPECIA [None]
  - SOMNOLENCE [None]
  - WEIGHT INCREASED [None]
